FAERS Safety Report 5228784-3 (Version None)
Quarter: 2007Q1

REPORT INFORMATION
  Report Type: 
  Country: None (occurrence: None)
  Receive Date: 20070205
  Receipt Date: 20070130
  Transmission Date: 20070707
  Serious: Yes (Hospitalization)
  Sender: FDA-Public Use
  Company Number: BE-MERCK-0611BEL00005

PATIENT
  Age: 81 Year
  Sex: Female
  Weight: 85 kg

DRUGS (5)
  1. MODURETIC 5-50 [Suspect]
     Indication: HYPERTENSION
     Route: 048
     Dates: start: 20051030
  2. ASPIRIN [Concomitant]
     Indication: PROPHYLAXIS
     Route: 048
     Dates: start: 19990101
  3. LISINOPRIL [Concomitant]
     Indication: HYPERTENSION
     Route: 048
     Dates: start: 19990101
  4. NAFRONYL OXALATE [Concomitant]
     Indication: VENOUS INSUFFICIENCY
     Route: 048
     Dates: start: 20010101
  5. LACIDIPINE [Concomitant]
     Indication: HYPERTENSION
     Route: 048
     Dates: start: 20040101, end: 20051102

REACTIONS (2)
  - ATRIAL FIBRILLATION [None]
  - CARDIAC FAILURE CONGESTIVE [None]
